FAERS Safety Report 6216864-5 (Version None)
Quarter: 2009Q2

REPORT INFORMATION
  Report Type: 
  Country: None (occurrence: None)
  Receive Date: 20090605
  Receipt Date: 20090527
  Transmission Date: 20091009
  Serious: Yes (Disabling)
  Sender: FDA-Public Use
  Company Number: ES-ABBOTT-09P-144-0575994-00

PATIENT
  Age: 32 Year
  Sex: Female

DRUGS (8)
  1. DEPAKENE [Suspect]
     Indication: EPILEPSY
  2. DEPAKENE [Suspect]
  3. DEPAKENE [Suspect]
     Dates: start: 20081031
  4. TEGRETOL [Suspect]
     Indication: EPILEPSY
  5. TEGRETOL [Suspect]
     Dates: end: 20081031
  6. TEGRETOL [Suspect]
     Dates: start: 20081031
  7. KEPPRA [Concomitant]
     Indication: EPILEPSY
     Dates: start: 20081031
  8. PHENYTOIN [Concomitant]
     Indication: DRUG USE FOR UNKNOWN INDICATION

REACTIONS (10)
  - AMNESIA [None]
  - ATAXIA [None]
  - DRUG INEFFECTIVE [None]
  - EPILEPSY [None]
  - HYPERVENTILATION [None]
  - MENTAL IMPAIRMENT [None]
  - MUSCLE SPASTICITY [None]
  - MUSCULOSKELETAL DEFORMITY [None]
  - URINARY INCONTINENCE [None]
  - WEIGHT DECREASED [None]
